FAERS Safety Report 8761080 (Version 2)
Quarter: 2012Q4

REPORT INFORMATION
  Report Type: 
  Country: CN (occurrence: CN)
  Receive Date: 20120830
  Receipt Date: 20120906
  Transmission Date: 20130627
  Serious: Yes (Hospitalization, Other)
  Sender: FDA-Public Use
  Company Number: CN-ASTRAZENECA-2012SE60859

PATIENT
  Sex: Female

DRUGS (3)
  1. LOSEC [Suspect]
     Indication: GASTRIC ULCER
     Route: 048
     Dates: start: 20120813, end: 20120815
  2. LOSEC [Suspect]
     Indication: GASTRIC ULCER
     Route: 048
  3. AMOXICILLIN [Concomitant]
     Indication: ANTIINFLAMMATORY THERAPY
     Route: 048
     Dates: start: 201208

REACTIONS (5)
  - Gastric ulcer [Recovered/Resolved]
  - Choking sensation [Recovered/Resolved]
  - Chest discomfort [Recovered/Resolved]
  - Dyspnoea [Recovered/Resolved]
  - Drug ineffective [Unknown]
